FAERS Safety Report 21657562 (Version 1)
Quarter: 2022Q4

REPORT INFORMATION
  Report Type: Spontaneous
  Country: DK (occurrence: DK)
  Receive Date: 20221129
  Receipt Date: 20221129
  Transmission Date: 20230113
  Serious: Yes (Hospitalization)
  Sender: FDA-Public Use
  Company Number: None

PATIENT
  Age: 48 Year
  Sex: Female

DRUGS (2)
  1. TAMOXIFEN [Suspect]
     Active Substance: TAMOXIFEN
     Indication: Breast cancer
     Dosage: 20 MILLIGRAM, QD, STRENGTH: UNKNOWN
     Route: 048
     Dates: start: 2013, end: 20130424
  2. TAMOXIFEN [Suspect]
     Active Substance: TAMOXIFEN
     Dosage: UNK DOSE, PLANNED TREATMENT FOR 10 YEARS
     Route: 048
     Dates: start: 20130816, end: 202005

REACTIONS (6)
  - Visual field defect [Unknown]
  - Balance disorder [Unknown]
  - Memory impairment [Recovering/Resolving]
  - Cerebral infarction [Unknown]
  - Depressed mood [Recovering/Resolving]
  - Cerebral thrombosis [Unknown]

NARRATIVE: CASE EVENT DATE: 20130101
